FAERS Safety Report 18949602 (Version 1)
Quarter: 2021Q1

REPORT INFORMATION
  Report Type: Spontaneous
  Country: US (occurrence: US)
  Receive Date: 20210227
  Receipt Date: 20210227
  Transmission Date: 20210420
  Serious: No
  Sender: FDA-Public Use
  Company Number: US-ROCHE-2603105

PATIENT
  Sex: Male

DRUGS (2)
  1. XOLAIR [Suspect]
     Active Substance: OMALIZUMAB
     Indication: ASTHMA
     Dosage: ROUTE: UNDER THE SKIN, DOSE STRENGTH 150 G/ML
     Route: 065
     Dates: start: 20161013
  2. XOLAIR [Suspect]
     Active Substance: OMALIZUMAB
     Dosage: ROUTE: UNDER THE SKIN
     Route: 065
     Dates: start: 20161013

REACTIONS (1)
  - Eosinophil count increased [Unknown]
